FAERS Safety Report 10098504 (Version 3)
Quarter: 2015Q1

REPORT INFORMATION
  Report Type: Spontaneous
  Country: US (occurrence: US)
  Receive Date: 20140423
  Receipt Date: 20150127
  Transmission Date: 20150720
  Serious: Yes (Hospitalization, Other)
  Sender: FDA-Public Use
  Company Number: US-BAYER-2014-057782

PATIENT
  Age: 41 Year
  Sex: Female
  Weight: 82 kg

DRUGS (15)
  1. LEXAPRO [Concomitant]
     Active Substance: ESCITALOPRAM OXALATE
     Dosage: 10 MG, DAILY
  2. K DUR [Concomitant]
     Indication: BLOOD POTASSIUM DECREASED
     Dosage: 10 MEQ, UNK
  3. KLOR-CON [Concomitant]
     Active Substance: POTASSIUM CHLORIDE
     Dosage: 1 TABLET PER DAY
     Route: 048
     Dates: start: 20080118
  4. YASMIN [Suspect]
     Active Substance: DROSPIRENONE\ETHINYL ESTRADIOL
     Dosage: UNK
     Dates: start: 200707, end: 200804
  5. BACLOFEN. [Concomitant]
     Active Substance: BACLOFEN
     Indication: OVERDOSE
     Dosage: 10 MG, TID, PRN
     Route: 048
  6. NEXIUM [Concomitant]
     Active Substance: ESOMEPRAZOLE MAGNESIUM
     Dosage: 20 MG, UNK
     Route: 048
     Dates: start: 20071214
  7. SUBOXONE [Concomitant]
     Active Substance: BUPRENORPHINE HYDROCHLORIDE\NALOXONE HYDROCHLORIDE
  8. TRAMADOL [Concomitant]
     Active Substance: TRAMADOL
     Indication: BREAKTHROUGH PAIN
     Dosage: 37.5 MG, EVERY 4 TO 6 HOURS PRN
     Route: 048
     Dates: start: 20071228
  9. SIMVASTATIN. [Concomitant]
     Active Substance: SIMVASTATIN
     Dosage: ONE TABLET
     Route: 048
     Dates: start: 20080118
  10. CADUET [Concomitant]
     Active Substance: AMLODIPINE BESYLATE\ATORVASTATIN CALCIUM
     Dosage: 5/10 MG TABLETS ONE PER DAY
  11. BABY ASPIRIN [Concomitant]
     Active Substance: ASPIRIN
  12. PERSANTINE [Concomitant]
     Active Substance: DIPYRIDAMOLE
     Indication: STRESS
  13. KEFLEX [Concomitant]
     Active Substance: CEPHALEXIN
     Dosage: 500 MG, QID
  14. ZOCOR [Concomitant]
     Active Substance: SIMVASTATIN
     Indication: BLOOD CHOLESTEROL INCREASED
     Dosage: 20 (UNITS NOT PROVIDED)
  15. CEPHALEXIN. [Concomitant]
     Active Substance: CEPHALEXIN
     Dosage: 500 MG, 1 C Q6H FOR 10 DAYS
     Route: 048
     Dates: start: 20080229

REACTIONS (10)
  - Pulmonary embolism [Recovered/Resolved]
  - Deep vein thrombosis [None]
  - Injury [None]
  - Emotional distress [None]
  - Mental disorder [None]
  - Thrombosis [None]
  - Pain [None]
  - Dyspnoea [Recovered/Resolved]
  - Cerebrovascular accident [None]
  - Traumatic lung injury [None]

NARRATIVE: CASE EVENT DATE: 20080328
